FAERS Safety Report 11855689 (Version 1)
Quarter: 2015Q4

REPORT INFORMATION
  Report Type: Spontaneous
  Country: US (occurrence: None)
  Receive Date: 20151218
  Receipt Date: 20151218
  Transmission Date: 20160305
  Serious: No
  Sender: FDA-Public Use
  Company Number: None

PATIENT
  Age: 65 Year
  Sex: Male

DRUGS (1)
  1. TYSABRI [Suspect]
     Active Substance: NATALIZUMAB
     Indication: MULTIPLE SCLEROSIS
     Dosage: Q4W
     Route: 042
     Dates: start: 201408, end: 201511

REACTIONS (2)
  - Condition aggravated [None]
  - Wheelchair user [None]

NARRATIVE: CASE EVENT DATE: 20140815
